FAERS Safety Report 9617431 (Version 3)
Quarter: 2013Q4

REPORT INFORMATION
  Report Type: Spontaneous
  Country: US (occurrence: None)
  Receive Date: 20131009
  Receipt Date: 20131108
  Transmission Date: 20140711
  Serious: Yes (Disabling, Other)
  Sender: FDA-Public Use
  Company Number: AUR-APL-2013-08368

PATIENT
  Age: 87 Year
  Sex: Female
  Weight: 57.61 kg

DRUGS (6)
  1. ALENDRONIC ACID (ALENDRONIC ACID) [Suspect]
     Indication: OSTEOPOROSIS
     Dosage: (70 MG, 1 IN 1 WK),  ORAL
     Route: 048
     Dates: start: 201308
  2. ALENDRONIC ACID (ALENDRONIC ACID) [Suspect]
     Indication: BONE DISORDER
     Dosage: (70 MG, 1 IN 1 WK),  ORAL
     Route: 048
     Dates: start: 201308
  3. KETOCONAZOLE (KETOCONAZOLE) [Concomitant]
  4. MUPIROCIN (MUPIROCIN) [Concomitant]
  5. ROPINIROLE HCL (ROPINIROLE HYDROCHLORIDE) [Concomitant]
  6. HYDROCODONE (HYDROCODONE) [Concomitant]

REACTIONS (6)
  - Back pain [None]
  - Arthralgia [None]
  - Groin pain [None]
  - Activities of daily living impaired [None]
  - Pain [None]
  - Paralysis [None]
